FAERS Safety Report 20564232 (Version 1)
Quarter: 2022Q1

REPORT INFORMATION
  Report Type: Spontaneous
  Country: US (occurrence: None)
  Receive Date: 20220308
  Receipt Date: 20220308
  Transmission Date: 20220423
  Serious: No
  Sender: FDA-Public Use
  Company Number: US-Merck KGaA-7147311

PATIENT
  Sex: Female

DRUGS (1)
  1. REBIF [Suspect]
     Active Substance: INTERFERON BETA-1A
     Indication: Multiple sclerosis
     Route: 058
     Dates: start: 20100125, end: 20120209

REACTIONS (5)
  - Drug hypersensitivity [Unknown]
  - Injection site urticaria [Unknown]
  - Urticaria [Unknown]
  - Chest discomfort [Unknown]
  - Dyspnoea [Unknown]
